FAERS Safety Report 19106091 (Version 1)
Quarter: 2021Q2

REPORT INFORMATION
  Report Type: Report from Study
  Country: US (occurrence: US)
  Receive Date: 20210407
  Receipt Date: 20210407
  Transmission Date: 20210717
  Serious: Yes (Death)
  Sender: FDA-Public Use
  Company Number: US-JNJFOC-20210409537

PATIENT
  Age: 72 Year
  Sex: Female

DRUGS (1)
  1. SELEXIPAG [Suspect]
     Active Substance: SELEXIPAG
     Indication: PULMONARY ARTERIAL HYPERTENSION
     Dosage: 1000 UG IN THE MORNING, 1200 UG IN THE EVENING
     Route: 048
     Dates: start: 20210112, end: 202103

REACTIONS (1)
  - Death [Fatal]
